FAERS Safety Report 10645382 (Version 2)
Quarter: 2014Q4

REPORT INFORMATION
  Report Type: Spontaneous
  Country: US (occurrence: None)
  Receive Date: 20141209
  Receipt Date: 20141216
  Transmission Date: 20150529
  Serious: Yes (Hospitalization)
  Sender: FDA-Public Use
  Company Number: 2014046950

PATIENT
  Age: 36 Year
  Sex: Female

DRUGS (1)
  1. STIMATE [Suspect]
     Active Substance: DESMOPRESSIN ACETATE
     Indication: HAEMORRHAGE
     Dosage: 2 SPRAYS IN 1 NOSTRIL, DAILY, PRN, BLEED,
     Route: 045
     Dates: start: 20140726

REACTIONS (4)
  - Infection [None]
  - Renal disorder [None]
  - Pyrexia [None]
  - Off label use [None]

NARRATIVE: CASE EVENT DATE: 20140729
